FAERS Safety Report 8166544-4 (Version None)
Quarter: 2012Q1

REPORT INFORMATION
  Report Type: 
  Country: None (occurrence: None)
  Receive Date: 20120227
  Receipt Date: 20110512
  Transmission Date: 20120608
  Serious: No
  Sender: FDA-Public Use
  Company Number: US-BRISTOL-MYERS SQUIBB COMPANY-15740962

PATIENT
  Age: 49 Year
  Sex: Female

DRUGS (1)
  1. TAXOL [Suspect]
     Dosage: 2 INFUSION.

REACTIONS (3)
  - PAIN IN EXTREMITY [None]
  - PARAESTHESIA [None]
  - BURNING SENSATION [None]
